FAERS Safety Report 6259782-9 (Version None)
Quarter: 2009Q3

REPORT INFORMATION
  Report Type: 
  Country: None (occurrence: None)
  Receive Date: 20090708
  Receipt Date: 20090701
  Transmission Date: 20100115
  Serious: Yes (Other)
  Sender: FDA-Public Use
  Company Number: US-AMGEN-KDL354107

PATIENT
  Sex: Male
  Weight: 70.4 kg

DRUGS (6)
  1. PROCRIT [Suspect]
     Indication: MYELODYSPLASTIC SYNDROME
     Route: 058
     Dates: start: 20080101
  2. ARANESP [Suspect]
     Indication: MYELODYSPLASTIC SYNDROME
     Dates: end: 20081001
  3. PREDNISONE [Concomitant]
  4. ALPRAZOLAM [Concomitant]
  5. CARVEDILOL [Concomitant]
  6. OMEPRAZOLE [Concomitant]

REACTIONS (4)
  - APPETITE DISORDER [None]
  - HAEMOGLOBIN DECREASED [None]
  - METASTASES TO LIVER [None]
  - SARCOMA METASTATIC [None]
